FAERS Safety Report 17568181 (Version 1)
Quarter: 2020Q1

REPORT INFORMATION
  Report Type: Spontaneous
  Country: NO (occurrence: NO)
  Receive Date: 20200320
  Receipt Date: 20200320
  Transmission Date: 20200409
  Serious: Yes (Other)
  Sender: FDA-Public Use
  Company Number: NO-PFIZER INC-2020119906

PATIENT
  Age: 33 Year
  Sex: Female
  Weight: 75 kg

DRUGS (5)
  1. ZOLOFT [Concomitant]
     Active Substance: SERTRALINE HYDROCHLORIDE
     Dosage: UNK
     Dates: start: 20190907
  2. NEURONTIN [Suspect]
     Active Substance: GABAPENTIN
     Indication: PAIN
     Dosage: 600 MG, 3X/DAY
     Dates: start: 20190620, end: 20191210
  3. NEURONTIN [Suspect]
     Active Substance: GABAPENTIN
     Indication: NEURALGIA
  4. SOMAC [Concomitant]
     Active Substance: PANTOPRAZOLE SODIUM
     Dosage: UNK
     Dates: start: 20190401
  5. IBUX [Concomitant]
     Active Substance: IBUPROFEN
     Dosage: UNK
     Dates: start: 20170801

REACTIONS (14)
  - Tremor [Recovered/Resolved]
  - Chest pain [Recovered/Resolved]
  - Depression [Recovered/Resolved]
  - Apathy [Recovered/Resolved]
  - Initial insomnia [Unknown]
  - Depressed mood [Recovered/Resolved]
  - Palpitations [Recovered/Resolved]
  - Crying [Unknown]
  - Disturbance in attention [Recovering/Resolving]
  - Suicidal ideation [Recovered/Resolved]
  - Pain [Unknown]
  - Restlessness [Recovered/Resolved]
  - Anxiety [Recovered/Resolved]
  - Memory impairment [Recovering/Resolving]

NARRATIVE: CASE EVENT DATE: 20190810
